FAERS Safety Report 15919294 (Version 2)
Quarter: 2019Q1

REPORT INFORMATION
  Report Type: Report from Study
  Country: FR (occurrence: FR)
  Receive Date: 20190205
  Receipt Date: 20190214
  Transmission Date: 20190417
  Serious: Yes (Other)
  Sender: FDA-Public Use
  Company Number: FR-GLAXOSMITHKLINE-FR2019GSK014785

PATIENT
  Age: 21 Year
  Sex: Female
  Weight: 62 kg

DRUGS (6)
  1. ZYVOXID [Concomitant]
     Active Substance: LINEZOLID
     Indication: INFLUENZA
     Route: 042
  2. ZANAMIVIR [Suspect]
     Active Substance: ZANAMIVIR
     Indication: INFLUENZA
     Dosage: 600 MG, BID
     Route: 042
     Dates: start: 20190106, end: 20190113
  3. CLAFORAN [Concomitant]
     Active Substance: CEFOTAXIME SODIUM
     Dosage: 3 G, QD
     Route: 042
     Dates: start: 20190107, end: 20190110
  4. EUPANTOL [Concomitant]
     Active Substance: PANTOPRAZOLE SODIUM
     Dosage: 80 MG, QOD
     Route: 042
     Dates: start: 20190104, end: 20190113
  5. ROVAMYCINE [Concomitant]
     Active Substance: SPIRAMYCIN
     Dosage: 9 MILLION IU, QOD
     Route: 042
     Dates: start: 20190106, end: 20190108
  6. TAZOCILLIN [Concomitant]
     Active Substance: PIPERACILLIN SODIUM\TAZOBACTAM SODIUM
     Indication: INFLUENZA
     Route: 042

REACTIONS (3)
  - Hepatocellular injury [Unknown]
  - Alanine aminotransferase increased [Unknown]
  - Aspartate aminotransferase increased [Unknown]

NARRATIVE: CASE EVENT DATE: 20190110
